FAERS Safety Report 5660930-X (Version None)
Quarter: 2008Q1

REPORT INFORMATION
  Report Type: 
  Country: None (occurrence: None)
  Receive Date: 20080311
  Receipt Date: 20080304
  Transmission Date: 20080703
  Serious: Yes (Other)
  Sender: FDA-Public Use
  Company Number: US-JNJFOC-20080301026

PATIENT
  Age: 11 Year
  Sex: Male
  Weight: 68.04 kg

DRUGS (3)
  1. TYLENOL COUGH AND SORE THROAT DAYTIME COOL BURST BERRY [Suspect]
     Indication: PAIN
     Route: 048
  2. TYLENOL COUGH AND SORE THROAT DAYTIME COOL BURST BERRY [Suspect]
     Indication: PHARYNGOLARYNGEAL PAIN
     Route: 048
  3. UNSPECIFIED NEBULIZER [Concomitant]
     Indication: ASTHMA

REACTIONS (2)
  - DISORIENTATION [None]
  - VOMITING [None]
